FAERS Safety Report 4519390-4 (Version None)
Quarter: 2004Q4

REPORT INFORMATION
  Report Type: 
  Country: None (occurrence: None)
  Receive Date: 20041206
  Receipt Date: 20041118
  Transmission Date: 20050328
  Serious: Yes (Other)
  Sender: FDA-Public Use
  Company Number: K200401795

PATIENT
  Age: 50 Year
  Sex: Male
  Weight: 97 kg

DRUGS (7)
  1. EPINEPHRINE [Suspect]
     Indication: SURGICAL HAEMOSTASIS
     Dosage: 5 MCG/ML
  2. BUPIVACAINE [Concomitant]
  3. MORPHINE SULFATE [Concomitant]
  4. LACTATED RINGER'S [Concomitant]
  5. REMIFENTANIL (REMIFENTANIL) [Concomitant]
  6. BUPIVACAINE [Concomitant]
  7. OMEPRAZOLE [Concomitant]

REACTIONS (7)
  - ANAESTHETIC COMPLICATION [None]
  - BLOOD PRESSURE DIASTOLIC DECREASED [None]
  - CARDIAC ARREST [None]
  - DRUG TOXICITY [None]
  - HEART RATE INCREASED [None]
  - LOSS OF CONSCIOUSNESS [None]
  - SINUS BRADYCARDIA [None]
